FAERS Safety Report 8224447-0 (Version None)
Quarter: 2012Q1

REPORT INFORMATION
  Report Type: 
  Country: None (occurrence: None)
  Receive Date: 20120319
  Receipt Date: 20120306
  Transmission Date: 20120608
  Serious: No
  Sender: FDA-Public Use
  Company Number: KV201200035

PATIENT
  Age: 32 Year
  Sex: Female

DRUGS (4)
  1. MAKENA [Suspect]
     Indication: PREMATURE DELIVERY
     Dosage: 250 MG, ONCE WEEKLY, INTRAMUSCULAR
     Route: 030
     Dates: start: 20111128, end: 20120201
  2. MAKENA [Suspect]
     Indication: OFF LABEL USE
     Dosage: 250 MG, ONCE WEEKLY, INTRAMUSCULAR
     Route: 030
     Dates: start: 20111128, end: 20120201
  3. INSULIN (INSULIN) [Concomitant]
  4. PRENATAL VITAMINS /01549301/ (ASCORBIC ACID, BIOTIN, MINERALS NOS, NIC [Concomitant]

REACTIONS (5)
  - CAESAREAN SECTION [None]
  - OFF LABEL USE [None]
  - CERVICAL INCOMPETENCE [None]
  - MATERNAL EXPOSURE DURING PREGNANCY [None]
  - CERVIX HAEMORRHAGE UTERINE [None]
